FAERS Safety Report 25360959 (Version 1)
Quarter: 2025Q2

REPORT INFORMATION
  Report Type: Report from Study
  Country: EG (occurrence: EG)
  Receive Date: 20250527
  Receipt Date: 20250527
  Transmission Date: 20250717
  Serious: Yes (Other)
  Sender: ROCHE
  Company Number: EG-002147023-NVSC2025EG081347

PATIENT
  Age: 41 Year
  Sex: Female
  Weight: 85 kg

DRUGS (3)
  1. XOLAIR [Suspect]
     Active Substance: OMALIZUMAB
     Indication: Urticaria
     Dosage: 2 DOSAGE FORM (150 MG: TWO INJECTIONS ONCE A MONTH), QMO
     Route: 058
     Dates: start: 2022
  2. HYDROQUINONE [Concomitant]
     Active Substance: HYDROQUINONE
     Indication: Immune system disorder
     Dosage: 1 DOSAGE FORM, BID, (TABLET)3 YEARS AGO
     Route: 050
  3. HYDROXYCHLOROQUINE DIPHOSPHATE [Concomitant]
     Active Substance: HYDROXYCHLOROQUINE DIPHOSPHATE

REACTIONS (9)
  - Memory impairment [Not Recovered/Not Resolved]
  - Tachycardia [Recovered/Resolved]
  - Rash [Not Recovered/Not Resolved]
  - Chest discomfort [Not Recovered/Not Resolved]
  - Mass [Recovered/Resolved]
  - Abdominal pain [Recovered/Resolved]
  - Pain [Recovered/Resolved]
  - Acne [Not Recovered/Not Resolved]
  - Ill-defined disorder [Not Recovered/Not Resolved]

NARRATIVE: CASE EVENT DATE: 20240501
